FAERS Safety Report 11246379 (Version 1)
Quarter: 2015Q3

REPORT INFORMATION
  Report Type: Spontaneous
  Country: US (occurrence: None)
  Receive Date: 20150706
  Receipt Date: 20150706
  Transmission Date: 20151125
  Serious: Yes (Other)
  Sender: FDA-Public Use
  Company Number: None

PATIENT
  Age: 29 Year
  Sex: Female
  Weight: 83.46 kg

DRUGS (6)
  1. COMBIGAN [Concomitant]
     Active Substance: BRIMONIDINE TARTRATE\TIMOLOL MALEATE
  2. DUREZOL [Suspect]
     Active Substance: DIFLUPREDNATE
     Indication: SCLERITIS
     Route: 047
     Dates: start: 20150610, end: 20150705
  3. LOTAMAX [Concomitant]
  4. RITALIN [Concomitant]
     Active Substance: METHYLPHENIDATE HYDROCHLORIDE
  5. ZYRTEC [Concomitant]
     Active Substance: CETIRIZINE HYDROCHLORIDE
  6. DUREZOL [Suspect]
     Active Substance: DIFLUPREDNATE
     Indication: UVEITIS
     Route: 047
     Dates: start: 20150610, end: 20150705

REACTIONS (2)
  - Vision blurred [None]
  - Intraocular pressure increased [None]

NARRATIVE: CASE EVENT DATE: 20150705
